FAERS Safety Report 6593351-6 (Version None)
Quarter: 2010Q1

REPORT INFORMATION
  Report Type: 
  Country: None (occurrence: None)
  Receive Date: 20100222
  Receipt Date: 20090304
  Transmission Date: 20100710
  Serious: Yes (Life-Threatening, Other)
  Sender: FDA-Public Use
  Company Number: US-BRISTOL-MYERS SQUIBB COMPANY-14505911

PATIENT
  Age: 67 Year
  Sex: Male

DRUGS (8)
  1. ORENCIA [Suspect]
     Indication: RHEUMATOID ARTHRITIS
     Route: 042
     Dates: start: 20080402, end: 20090106
  2. METHOTREXATE [Suspect]
     Indication: RHEUMATOID ARTHRITIS
     Dosage: ALSO TAKEN AS CONMED.
     Route: 048
     Dates: start: 19960101
  3. PREDNISONE [Concomitant]
  4. SIMVASTATIN [Concomitant]
  5. HYDROCODONE [Concomitant]
     Dosage: 1 DOSAGE FORM= 7.5/500 (UNITS NOT SPECIFIED)
  6. ASPIRIN [Concomitant]
  7. FOLIC ACID [Concomitant]
  8. NITROGLYCERIN SL [Concomitant]

REACTIONS (1)
  - LUNG ADENOCARCINOMA [None]
